FAERS Safety Report 13663004 (Version 4)
Quarter: 2017Q2

REPORT INFORMATION
  Report Type: Spontaneous
  Country: US (occurrence: US)
  Receive Date: 20170619
  Receipt Date: 20170619
  Transmission Date: 20170830
  Serious: Yes (Death, Other)
  Sender: FDA-Public Use
  Company Number: US-BRISTOL-MYERS SQUIBB COMPANY-BMS-2017-050138

PATIENT

DRUGS (1)
  1. SPRYCEL [Suspect]
     Active Substance: DASATINIB
     Indication: CHRONIC MYELOID LEUKAEMIA
     Dosage: 60 MG/M2, UNK
     Route: 048

REACTIONS (7)
  - Myalgia [Unknown]
  - Nausea [Unknown]
  - Vomiting [Unknown]
  - Gastrointestinal haemorrhage [Fatal]
  - Fatigue [Unknown]
  - Arthralgia [Unknown]
  - Rash [Unknown]
